FAERS Safety Report 18085651 (Version 2)
Quarter: 2020Q3

REPORT INFORMATION
  Report Type: Report from Study
  Country: None (occurrence: US)
  Receive Date: 20200729
  Receipt Date: 20200806
  Transmission Date: 20201103
  Serious: No
  Sender: FDA-Public Use
  Company Number: US-BIOVITRUM-2020US3948

PATIENT
  Age: 55 Year
  Sex: Female

DRUGS (1)
  1. KINERET [Suspect]
     Active Substance: ANAKINRA
     Indication: OSTEOARTHRITIS
     Route: 058
     Dates: start: 20200316

REACTIONS (3)
  - Off label use [Recovered/Resolved]
  - Nail infection [Unknown]
  - Limb injury [Unknown]

NARRATIVE: CASE EVENT DATE: 20200316
